FAERS Safety Report 15214597 (Version 3)
Quarter: 2018Q3

REPORT INFORMATION
  Report Type: Spontaneous
  Country: DE (occurrence: DE)
  Receive Date: 20180730
  Receipt Date: 20180913
  Transmission Date: 20181010
  Serious: Yes (Death, Life-Threatening)
  Sender: FDA-Public Use
  Company Number: DE-ROCHE-2160544

PATIENT
  Age: 64 Year
  Sex: Female
  Weight: 60 kg

DRUGS (5)
  1. DECORTIN H [Concomitant]
     Active Substance: PREDNISOLONE
     Indication: RHEUMATIC DISORDER
     Route: 048
  2. HEPARIN [Suspect]
     Active Substance: HEPARIN SODIUM
     Indication: THROMBOLYSIS
     Route: 013
     Dates: start: 20180721, end: 20180722
  3. ACTILYSE [Suspect]
     Active Substance: ALTEPLASE
     Indication: DEVICE OCCLUSION
     Dosage: 10MG BOLUS ADMINISTRATION, THAN 1MG/HR, TOTAL DOSE 17 MILLIGRAM
     Route: 013
     Dates: start: 20180721, end: 20180722
  4. MTX HEXAL [Concomitant]
     Active Substance: METHOTREXATE SODIUM
     Indication: RHEUMATIC DISORDER
     Route: 065
  5. ACTILYSE [Suspect]
     Active Substance: ALTEPLASE
     Route: 013

REACTIONS (6)
  - Coma [Unknown]
  - Monoparesis [Unknown]
  - Hemiparesis [Unknown]
  - Cerebral haemorrhage [Fatal]
  - Brain death [Fatal]
  - Ischaemic stroke [Fatal]

NARRATIVE: CASE EVENT DATE: 20180721
